FAERS Safety Report 9016486 (Version 1)
Quarter: 2013Q1

REPORT INFORMATION
  Report Type: Spontaneous
  Country: US (occurrence: US)
  Receive Date: 20130116
  Receipt Date: 20130116
  Transmission Date: 20140127
  Serious: No
  Sender: FDA-Public Use
  Company Number: US-PFIZER INC-2013016282

PATIENT
  Age: 13 Month
  Sex: Female
  Weight: 10.88 kg

DRUGS (1)
  1. INFANTS ADVIL CONCENTRATED DROPS [Suspect]
     Indication: PYREXIA
     Dosage: UNK, DAILY
     Dates: start: 20130111, end: 20130112

REACTIONS (1)
  - Rash macular [Not Recovered/Not Resolved]
